FAERS Safety Report 11021565 (Version 2)
Quarter: 2015Q2

REPORT INFORMATION
  Report Type: Spontaneous
  Country: US (occurrence: US)
  Receive Date: 20150413
  Receipt Date: 20150518
  Transmission Date: 20150821
  Serious: Yes (Hospitalization)
  Sender: FDA-Public Use
  Company Number: US-ROXANE LABORATORIES, INC.-2015-RO-00613RO

PATIENT
  Age: 15 Month
  Sex: Male

DRUGS (2)
  1. PROPRANOLOL [Suspect]
     Active Substance: PROPRANOLOL\PROPRANOLOL HYDROCHLORIDE
     Indication: TACHYCARDIA
     Route: 048
     Dates: start: 201401
  2. PROPRANOLOL [Suspect]
     Active Substance: PROPRANOLOL\PROPRANOLOL HYDROCHLORIDE
     Indication: WOLFF-PARKINSON-WHITE SYNDROME

REACTIONS (4)
  - Product quality issue [Unknown]
  - Lethargy [Unknown]
  - Blood glucose decreased [Unknown]
  - Petechiae [Unknown]

NARRATIVE: CASE EVENT DATE: 20150406
